FAERS Safety Report 23703916 (Version 1)
Quarter: 2024Q2

REPORT INFORMATION
  Report Type: Spontaneous
  Country: PT (occurrence: PT)
  Receive Date: 20240403
  Receipt Date: 20240403
  Transmission Date: 20240716
  Serious: Yes (Other)
  Sender: FDA-Public Use
  Company Number: PT-AKCEA THERAPEUTICS, INC.-2024IS002903

PATIENT

DRUGS (4)
  1. TEGSEDI [Suspect]
     Active Substance: INOTERSEN SODIUM
     Indication: Product used for unknown indication
     Dosage: 284 MILLIGRAM, QW
     Route: 058
     Dates: start: 20220611, end: 20220624
  2. TEGSEDI [Suspect]
     Active Substance: INOTERSEN SODIUM
     Dosage: 300 MILLIGRAM, QW
     Route: 058
     Dates: start: 20210601
  3. PANTOPRAZOLE [Concomitant]
     Active Substance: PANTOPRAZOLE
     Indication: Impaired gastric emptying
     Dosage: 20 MILLIGRAM, QD
     Route: 048
     Dates: start: 20160523
  4. RETINOL [Concomitant]
     Active Substance: RETINOL
     Indication: Product used for unknown indication
     Dosage: 300 U, QD, FOR INOTERSEN TREATMENT
     Route: 048
     Dates: start: 20211112

REACTIONS (10)
  - Glomerular filtration rate decreased [Recovered/Resolved]
  - Complement factor C3 decreased [Recovered/Resolved]
  - Blood immunoglobulin M increased [Recovered/Resolved]
  - Antineutrophil cytoplasmic antibody increased [Recovered/Resolved]
  - Blood immunoglobulin G increased [Recovered/Resolved]
  - Complement factor C4 decreased [Recovered/Resolved]
  - Blood urea increased [Unknown]
  - Blood creatinine decreased [Unknown]
  - Haemoglobin decreased [Unknown]
  - Light chain analysis abnormal [Unknown]

NARRATIVE: CASE EVENT DATE: 20210611
